FAERS Safety Report 7387704-6 (Version None)
Quarter: 2011Q1

REPORT INFORMATION
  Report Type: 
  Country: None (occurrence: None)
  Receive Date: 20110331
  Receipt Date: 20110318
  Transmission Date: 20110831
  Serious: Yes (Hospitalization, Other)
  Sender: FDA-Public Use
  Company Number: JP-CELGENEUS-087-21880-10111556

PATIENT
  Sex: Female
  Weight: 39 kg

DRUGS (19)
  1. ARTIST [Concomitant]
     Indication: ANGINA PECTORIS
     Dosage: 5 MILLIGRAM
     Route: 048
     Dates: start: 20100910
  2. REVLIMID [Suspect]
     Dosage: 15 MILLIGRAM
     Route: 048
     Dates: start: 20101020, end: 20101030
  3. REVLIMID [Suspect]
     Dosage: 10 MILLIGRAM
     Route: 048
     Dates: start: 20101117, end: 20110104
  4. LENADEX [Suspect]
     Dosage: 40 MILLIGRAM
     Route: 048
     Dates: start: 20101020, end: 20101023
  5. BAKTAR [Concomitant]
     Indication: PROPHYLAXIS
     Dosage: .2 GRAM
     Route: 048
     Dates: start: 20100910
  6. HEPARIN SODIUM [Concomitant]
     Indication: PROPHYLAXIS
     Dosage: 10000 UNIT
     Route: 041
     Dates: start: 20100910, end: 20100916
  7. WARFARIN SODIUM [Concomitant]
     Dosage: 2.5 MILLIGRAM
     Route: 048
     Dates: start: 20100917, end: 20100920
  8. TAKEPRON [Concomitant]
     Dosage: 30 MILLIGRAM
     Route: 065
     Dates: start: 20101020
  9. WARFARIN SODIUM [Concomitant]
     Dosage: 2 MILLIGRAM
     Route: 048
     Dates: start: 20100921, end: 20101004
  10. CONIEL [Concomitant]
     Indication: HYPERTENSION
     Dosage: 4 MILLIGRAM
     Route: 048
     Dates: start: 20100910, end: 20101019
  11. DEXART [Concomitant]
     Indication: MULTIPLE MYELOMA
     Dosage: 33 MILLIGRAM
     Route: 041
     Dates: start: 20100910, end: 20100921
  12. ALOSENN [Concomitant]
     Indication: CONSTIPATION
     Dosage: .5 GRAM
     Route: 048
     Dates: start: 20100910
  13. BUFFERIN [Concomitant]
     Indication: ANGINA PECTORIS
     Dosage: 81 MILLIGRAM
     Route: 048
     Dates: start: 20100910
  14. LENADEX [Suspect]
     Dosage: 20 MILLIGRAM
     Route: 048
     Dates: start: 20101117, end: 20101229
  15. WARFARIN SODIUM [Concomitant]
     Indication: PROPHYLAXIS
     Dosage: 2 MILLIGRAM
     Route: 048
     Dates: start: 20100913, end: 20100916
  16. SIGMART [Concomitant]
     Indication: ANGINA PECTORIS
     Dosage: 10 MILLIGRAM
     Route: 048
     Dates: start: 20100910
  17. REVLIMID [Suspect]
     Indication: MULTIPLE MYELOMA
     Dosage: 15 MILLIGRAM
     Route: 048
     Dates: start: 20100910, end: 20100930
  18. LENADEX [Suspect]
     Indication: MULTIPLE MYELOMA
     Dosage: 40 MILLIGRAM
     Route: 048
     Dates: start: 20100926, end: 20100929
  19. TAKEPRON [Concomitant]
     Indication: PROPHYLAXIS
     Dosage: 15 MILLIGRAM
     Route: 048
     Dates: start: 20100910, end: 20101003

REACTIONS (8)
  - NEUTROPENIA [None]
  - PROTHROMBIN TIME PROLONGED [None]
  - PLATELET COUNT DECREASED [None]
  - THROMBOCYTOPENIA [None]
  - COUGH [None]
  - UPPER GASTROINTESTINAL HAEMORRHAGE [None]
  - UPPER RESPIRATORY TRACT INFLAMMATION [None]
  - PNEUMONIA [None]
